FAERS Safety Report 7187310-2 (Version None)
Quarter: 2010Q4

REPORT INFORMATION
  Report Type: 
  Country: None (occurrence: None)
  Receive Date: 20101222
  Receipt Date: 20101216
  Transmission Date: 20110411
  Serious: Yes (Other)
  Sender: FDA-Public Use
  Company Number: JP-ELI_LILLY_AND_COMPANY-JP201011006263

PATIENT
  Sex: Female
  Weight: 56.9 kg

DRUGS (12)
  1. ALIMTA [Suspect]
     Indication: LUNG ADENOCARCINOMA STAGE IV
     Dosage: 750 MG, ONCE A THREE WEEKS
     Route: 042
     Dates: start: 20100729, end: 20101111
  2. PARAPLATIN [Concomitant]
     Indication: LUNG ADENOCARCINOMA STAGE IV
     Dosage: 350MG, ONCE A THREE WEEKS
     Route: 042
     Dates: start: 20100729, end: 20101021
  3. DECADRON [Concomitant]
     Dosage: 6.6 MG, UNK
     Route: 042
     Dates: start: 20101111
  4. RAMELTEON [Concomitant]
     Dosage: 0.3 MG, UNK
     Route: 042
     Dates: start: 20101111
  5. GLYBURIDE [Concomitant]
     Dosage: 2.5 MG, 2/D
     Route: 048
     Dates: start: 20070528
  6. BLOSTAR M [Concomitant]
     Dosage: 20 MG, 2/D
     Route: 048
     Dates: start: 20070528
  7. FOLIC ACID [Concomitant]
     Indication: PROPHYLAXIS
     Dosage: 0.5 G, DAILY (1/D)
     Route: 048
     Dates: start: 20100720
  8. KINEDAK [Concomitant]
     Dosage: 50 MG, 3/D
     Route: 048
     Dates: start: 20100909
  9. MUCODYNE [Concomitant]
     Dosage: 500 MG, 3/D
     Route: 048
     Dates: start: 20100205
  10. MAGNESIUM OXIDE [Concomitant]
     Dosage: 0.5 G, 3/D
     Route: 048
     Dates: start: 20070528
  11. BERIZYM [Concomitant]
     Dosage: 0.5 G, 3/D
     Route: 048
     Dates: start: 20070727
  12. MUCOSTA [Concomitant]
     Dosage: 100 G, 3/D
     Route: 048
     Dates: start: 20070528

REACTIONS (1)
  - ANAPHYLACTIC SHOCK [None]
